FAERS Safety Report 8763980 (Version 1)
Quarter: 2012Q4

REPORT INFORMATION
  Report Type: 
  Country: DE (occurrence: DE)
  Receive Date: 20120831
  Receipt Date: 20120831
  Transmission Date: 20130627
  Serious: Yes (Hospitalization)
  Sender: FDA-Public Use
  Company Number: DE-009507513-1208DEU011787

PATIENT

DRUGS (5)
  1. JANUMET [Suspect]
     Indication: TYPE 2 DIABETES MELLITUS
     Dosage: 50/1000 mg, bid
     Route: 048
     Dates: start: 20100223
  2. PANTOPRAZOLE [Concomitant]
     Indication: GASTRITIS
     Dosage: 20 mg, qd
     Route: 048
  3. PROTAPHANE [Concomitant]
     Indication: TYPE 2 DIABETES MELLITUS
     Route: 058
  4. FALITHROM [Concomitant]
     Indication: COMPARTMENT SYNDROME
     Dosage: after INR
     Route: 048
     Dates: start: 2008
  5. TORSEMIDE [Concomitant]
     Indication: HYPERTENSION
     Dosage: 10 mg, qd
     Route: 048

REACTIONS (1)
  - Hyperlipasaemia [Recovered/Resolved]
